FAERS Safety Report 7827188-4 (Version None)
Quarter: 2011Q4

REPORT INFORMATION
  Report Type: 
  Country: None (occurrence: None)
  Receive Date: 20111019
  Receipt Date: 20111019
  Transmission Date: 20120403
  Serious: Yes (Other)
  Sender: FDA-Public Use
  Company Number: None

PATIENT
  Sex: Male
  Weight: 107.0489 kg

DRUGS (2)
  1. SUPREP BOWEL PREP KIT [Suspect]
     Indication: COLONOSCOPY
     Dosage: 1-6 OZ. BOTTLES ON SUN. ENTIRE 6 OZ. BOTTLE 9-12-11 ENTIRE 6 OZ. BOTTLE
     Dates: start: 20110912
  2. SUPREP BOWEL PREP KIT [Suspect]
     Indication: COLONOSCOPY
     Dosage: 1-6 OZ. BOTTLES ON SUN. ENTIRE 6 OZ. BOTTLE 9-12-11 ENTIRE 6 OZ. BOTTLE
     Dates: start: 20110911

REACTIONS (3)
  - URTICARIA [None]
  - HEART RATE IRREGULAR [None]
  - CHEST PAIN [None]
